FAERS Safety Report 7015748-2 (Version None)
Quarter: 2010Q3

REPORT INFORMATION
  Report Type: 
  Country: None (occurrence: None)
  Receive Date: 20100927
  Receipt Date: 20090810
  Transmission Date: 20110219
  Serious: No
  Sender: FDA-Public Use
  Company Number: US-ASTRAZENECA-2009UW09200

PATIENT
  Age: 60 Year
  Sex: Female
  Weight: 89.4 kg

DRUGS (5)
  1. ARIMIDEX [Suspect]
     Indication: BREAST CANCER
     Route: 048
     Dates: start: 20090401
  2. HERCEPTIN [Concomitant]
  3. FOLIC ACID [Concomitant]
  4. VITAMIN D [Concomitant]
  5. VITAMIN AND MINERAL PRENATAL SUPPLEMENT W/ FOLIC ACID CAP [Concomitant]

REACTIONS (6)
  - ALOPECIA [None]
  - CARDIAC DISORDER [None]
  - DRY SKIN [None]
  - HOT FLUSH [None]
  - WEIGHT DECREASED [None]
  - WEIGHT INCREASED [None]
